FAERS Safety Report 4526346-4 (Version None)
Quarter: 2004Q4

REPORT INFORMATION
  Report Type: 
  Country: None (occurrence: None)
  Receive Date: 20041210
  Receipt Date: 20041203
  Transmission Date: 20050328
  Serious: Yes (Hospitalization)
  Sender: FDA-Public Use
  Company Number: STA-AE-04-MTX-609

PATIENT
  Age: 65 Year
  Sex: Female

DRUGS (7)
  1. RHEUMATREX [Suspect]
     Indication: RHEUMATOID ARTHRITIS
     Dosage: SEE IMAGE
     Route: 048
     Dates: start: 20020701, end: 20021001
  2. RHEUMATREX [Suspect]
     Indication: RHEUMATOID ARTHRITIS
     Dosage: SEE IMAGE
     Route: 048
     Dates: start: 20030909, end: 20040820
  3. REMICADE [Suspect]
     Indication: RHEUMATOID ARTHRITIS
     Dates: start: 20040611, end: 20040611
  4. REMICADE [Suspect]
     Indication: RHEUMATOID ARTHRITIS
     Dates: start: 20040625, end: 20040625
  5. REMICADE [Suspect]
     Indication: RHEUMATOID ARTHRITIS
     Dates: start: 20040723, end: 20040723
  6. PREDNISOLONE [Concomitant]
  7. ENALAPRIL MALEATE [Concomitant]

REACTIONS (6)
  - BLOOD BETA-D-GLUCAN INCREASED [None]
  - BLOOD SODIUM DECREASED [None]
  - DYSPNOEA [None]
  - HYPOGLYCAEMIA [None]
  - PLEURAL FIBROSIS [None]
  - PNEUMOCYSTIS CARINII PNEUMONIA [None]
